FAERS Safety Report 7812693-7 (Version None)
Quarter: 2011Q4

REPORT INFORMATION
  Report Type: 
  Country: None (occurrence: None)
  Receive Date: 20111013
  Receipt Date: 20110929
  Transmission Date: 20120403
  Serious: Yes (Other)
  Sender: FDA-Public Use
  Company Number: FR-ELI_LILLY_AND_COMPANY-FR201109008241

PATIENT
  Sex: Female

DRUGS (7)
  1. PROZAC [Suspect]
     Dosage: UNK
     Route: 048
     Dates: start: 20060201
  2. LEVOTHYROXINE SODIUM [Concomitant]
     Dosage: 150 UG, QD
     Dates: start: 20080701
  3. EBASTINE [Concomitant]
     Dosage: UNK
  4. RABEPRAZOLE SODIUM [Concomitant]
     Dosage: UNK
  5. FLUTICASONE PROPIONATE/SALMETEROL [Concomitant]
     Indication: ASTHMA
     Dosage: UNK
     Route: 055
     Dates: start: 19980101
  6. MEDIATOR [Concomitant]
     Indication: OVERWEIGHT
     Dosage: 1 DF, BID
     Route: 048
     Dates: start: 20060103, end: 20091230
  7. ISOMERIDE [Concomitant]

REACTIONS (3)
  - DYSPNOEA EXERTIONAL [None]
  - PULMONARY HYPERTENSION [None]
  - MITRAL VALVE DISEASE [None]
